FAERS Safety Report 7478162-1 (Version None)
Quarter: 2011Q2

REPORT INFORMATION
  Report Type: 
  Country: None (occurrence: None)
  Receive Date: 20110513
  Receipt Date: 20110429
  Transmission Date: 20111010
  Serious: Yes (Other)
  Sender: FDA-Public Use
  Company Number: US-JNJFOC-20110504616

PATIENT
  Sex: Female
  Weight: 63.5 kg

DRUGS (11)
  1. FENTANYL [Suspect]
     Route: 062
  2. FENTANYL [Suspect]
     Indication: ARTHRITIS
     Route: 062
  3. FENTANYL [Suspect]
     Route: 062
  4. FENTANYL [Suspect]
     Route: 062
  5. FENTANYL [Suspect]
     Route: 062
  6. FENTANYL [Suspect]
     Route: 062
  7. GABAPENTIN [Concomitant]
     Indication: NERVE INJURY
     Dosage: 600MG AND 900MG/TABLET/200MG/600MG IN AM AND 900 IN PM/ORAL
     Route: 048
  8. FENTANYL [Suspect]
     Indication: INTERVERTEBRAL DISC DEGENERATION
     Route: 062
  9. FENTANYL [Suspect]
     Route: 062
  10. FENTANYL [Suspect]
     Indication: CHRONIC FATIGUE SYNDROME
     Route: 062
  11. FENTANYL [Suspect]
     Indication: FIBROMYALGIA
     Route: 062

REACTIONS (4)
  - PAIN IN EXTREMITY [None]
  - ROAD TRAFFIC ACCIDENT [None]
  - MOVEMENT DISORDER [None]
  - DRUG DOSE OMISSION [None]
